FAERS Safety Report 21141337 (Version 1)
Quarter: 2022Q3

REPORT INFORMATION
  Report Type: Spontaneous
  Country: GB (occurrence: GB)
  Receive Date: 20220728
  Receipt Date: 20220728
  Transmission Date: 20221027
  Serious: Yes (Other)
  Sender: FDA-Public Use
  Company Number: None

PATIENT
  Age: 71 Year
  Sex: Female

DRUGS (1)
  1. IMATINIB [Suspect]
     Active Substance: IMATINIB
     Indication: Chronic myeloid leukaemia
     Dosage: UNK
     Route: 065
     Dates: start: 20200813, end: 20210402

REACTIONS (5)
  - Thrombocytopenia [Unknown]
  - Cytogenetic analysis abnormal [Unknown]
  - Abdominal discomfort [Unknown]
  - Drug intolerance [Unknown]
  - Therapeutic product effect decreased [Unknown]
